FAERS Safety Report 8922118 (Version 1)
Quarter: 2012Q4

REPORT INFORMATION
  Report Type: Spontaneous
  Country: US (occurrence: None)
  Receive Date: 20121120
  Receipt Date: 20121120
  Transmission Date: 20130627
  Serious: Yes (Hospitalization)
  Sender: FDA-Public Use
  Company Number: None

PATIENT
  Sex: Female

DRUGS (12)
  1. SUTENT [Suspect]
     Indication: KIDNEY CANCER
     Dosage: 50mg 1 cap by mouth QD  QD for 4 weeks then off for 2 week then  repeat
Duration: less than 3 months
     Route: 048
  2. PREDNISONE [Concomitant]
  3. SENOKOT [Concomitant]
  4. COLACE [Concomitant]
  5. FAMOTIDINE [Concomitant]
  6. RAMIPRIL [Concomitant]
  7. ALPRAZOLAM [Concomitant]
  8. AMLODOPINE [Concomitant]
  9. ROXINOL [Concomitant]
  10. KLOR-CON [Concomitant]
  11. FENTANYL [Concomitant]
  12. ZOLO [Concomitant]

REACTIONS (1)
  - Postoperative thrombosis [None]
